FAERS Safety Report 7978131-9 (Version None)
Quarter: 2011Q4

REPORT INFORMATION
  Report Type: 
  Country: None (occurrence: None)
  Receive Date: 20111212
  Receipt Date: 20111212
  Transmission Date: 20120403
  Serious: Yes (Hospitalization)
  Sender: FDA-Public Use
  Company Number: None

PATIENT
  Age: 82 Year
  Sex: Male
  Weight: 124.6 kg

DRUGS (2)
  1. BUMETANIDE [Suspect]
     Indication: CARDIAC FAILURE CONGESTIVE
     Dosage: 2 MG BID PO; 5 MG EVERY DAY PO
     Route: 048
     Dates: start: 20111027, end: 20111203
  2. BUMETANIDE [Suspect]
     Indication: CARDIAC FAILURE CONGESTIVE
     Dosage: 2 MG BID PO; 5 MG EVERY DAY PO
     Route: 048
     Dates: start: 20111115, end: 20111203

REACTIONS (3)
  - HYPERKALAEMIA [None]
  - SYNCOPE [None]
  - RENAL FAILURE ACUTE [None]
